FAERS Safety Report 9219400 (Version 1)
Quarter: 2013Q1

REPORT INFORMATION
  Report Type: Spontaneous
  Country: US (occurrence: US)
  Receive Date: 20120830
  Receipt Date: 20120830
  Transmission Date: 20140127
  Serious: Yes (Other)
  Sender: FDA-Public Use
  Company Number: PHEH2012US002041

PATIENT
  Age: 57 Year
  Sex: Female

DRUGS (8)
  1. EXFORGE [Suspect]
  2. LIPITOR (ATORVASTATIN CALCIUM) [Concomitant]
  3. LEVOTHYROXINE (LEVOTHYROXINE) [Concomitant]
  4. METFORMIN (METFORMIN) [Concomitant]
  5. WELCHOL (COLESEVELAM HYDROCHLORIDE) [Concomitant]
  6. PROTONIX ^PHARMACIA^ (PANTOPRAZOLE) [Concomitant]
  7. VITAMIN D3 (COLECALCIFEROL) [Concomitant]
  8. VITAMIN B12 (CYANOCOBALAMIN) [Concomitant]

REACTIONS (2)
  - Hypertension [None]
  - Stress [None]
